FAERS Safety Report 15021677 (Version 2)
Quarter: 2018Q2

REPORT INFORMATION
  Report Type: Spontaneous
  Country: US (occurrence: US)
  Receive Date: 20180618
  Receipt Date: 20180628
  Transmission Date: 20180711
  Serious: No
  Sender: FDA-Public Use
  Company Number: US-APOTEX-2018AP015372

PATIENT
  Age: 71 Year
  Sex: Male

DRUGS (10)
  1. ANASTROZOLE. [Suspect]
     Active Substance: ANASTROZOLE
     Indication: INSOMNIA
     Dosage: UNK
     Route: 065
  2. TEMAZEPAM. [Suspect]
     Active Substance: TEMAZEPAM
     Indication: INSOMNIA
     Dosage: UNK
     Route: 065
  3. TRYPTOPHAN                         /00215101/ [Suspect]
     Active Substance: TRYPTOPHAN
     Indication: INSOMNIA
     Dosage: UNK
     Route: 065
  4. MELATONIN [Suspect]
     Active Substance: MELATONIN
     Indication: INSOMNIA
     Dosage: 30 MG, UNK
     Route: 065
  5. DHEA [Suspect]
     Active Substance: PRASTERONE
     Indication: INSOMNIA
     Dosage: UNK
     Route: 065
  6. RAMELTEON [Suspect]
     Active Substance: RAMELTEON
     Indication: INSOMNIA
     Dosage: UNK
     Route: 065
  7. PROGESTERONE. [Suspect]
     Active Substance: PROGESTERONE
     Indication: INSOMNIA
     Dosage: UNK
     Route: 065
  8. AMITRIPTYLINE [Suspect]
     Active Substance: AMITRIPTYLINE
     Indication: INSOMNIA
     Dosage: UNK
     Route: 065
  9. QUETIAPINE. [Suspect]
     Active Substance: QUETIAPINE
     Indication: INSOMNIA
     Dosage: UNK
     Route: 065
  10. HYDROCORTISONE. [Suspect]
     Active Substance: HYDROCORTISONE
     Indication: INSOMNIA
     Dosage: UNK
     Route: 065

REACTIONS (2)
  - Multiple drug therapy [Unknown]
  - Off label use [Unknown]
